FAERS Safety Report 18947572 (Version 1)
Quarter: 2021Q1

REPORT INFORMATION
  Report Type: Spontaneous
  Country: IN (occurrence: IN)
  Receive Date: 20210226
  Receipt Date: 20210226
  Transmission Date: 20210420
  Serious: Yes (Other)
  Sender: FDA-Public Use
  Company Number: IN-PFIZER INC-2021137125

PATIENT
  Age: 65 Year
  Sex: Female

DRUGS (2)
  1. PALBACE [Suspect]
     Active Substance: PALBOCICLIB
     Dosage: 125 MG, CYCLIC (DAY 1? DAY 21, EVERY 28 DAYS)
     Route: 048
     Dates: start: 20201210
  2. PALBACE [Suspect]
     Active Substance: PALBOCICLIB
     Indication: BREAST CANCER METASTATIC
     Dosage: 125 MG, CYCLIC (DAY 1? DAY 21, EVERY 28 DAYS)
     Route: 048
     Dates: start: 20201207

REACTIONS (3)
  - Urinary tract infection [Unknown]
  - Renal impairment [Unknown]
  - Renal disorder [Unknown]
